FAERS Safety Report 18473131 (Version 32)
Quarter: 2022Q4

REPORT INFORMATION
  Report Type: Report from Study
  Country: DE (occurrence: DE)
  Receive Date: 20201106
  Receipt Date: 20221230
  Transmission Date: 20230113
  Serious: Yes (Hospitalization, Other)
  Sender: FDA-Public Use
  Company Number: DE-TAKEDA-2020TUS046810

PATIENT
  Age: 35 Year
  Sex: Female

DRUGS (30)
  1. HUMAN IMMUNOGLOBULIN G\HYALURONIDASE RECOMBINANT HUMAN [Suspect]
     Active Substance: HUMAN IMMUNOGLOBULIN G\HYALURONIDASE RECOMBINANT HUMAN
     Indication: Immunodeficiency common variable
     Dosage: 20 GRAM, Q2WEEKS
     Route: 058
     Dates: start: 20180920
  2. HUMAN IMMUNOGLOBULIN G\HYALURONIDASE RECOMBINANT HUMAN [Suspect]
     Active Substance: HUMAN IMMUNOGLOBULIN G\HYALURONIDASE RECOMBINANT HUMAN
     Indication: Primary immunodeficiency syndrome
     Dosage: 20 GRAM, Q2WEEKS
     Route: 058
     Dates: start: 20180920
  3. HUMAN IMMUNOGLOBULIN G\HYALURONIDASE RECOMBINANT HUMAN [Suspect]
     Active Substance: HUMAN IMMUNOGLOBULIN G\HYALURONIDASE RECOMBINANT HUMAN
     Indication: Immunodeficiency
     Dosage: 20 GRAM, Q2WEEKS
     Route: 058
     Dates: start: 20180928
  4. HUMAN IMMUNOGLOBULIN G\HYALURONIDASE RECOMBINANT HUMAN [Suspect]
     Active Substance: HUMAN IMMUNOGLOBULIN G\HYALURONIDASE RECOMBINANT HUMAN
     Dosage: 15 GRAM, Q2WEEKS
     Route: 058
     Dates: start: 20180928, end: 20210514
  5. HUMAN IMMUNOGLOBULIN G\HYALURONIDASE RECOMBINANT HUMAN [Suspect]
     Active Substance: HUMAN IMMUNOGLOBULIN G\HYALURONIDASE RECOMBINANT HUMAN
     Dosage: 5 GRAM, Q2WEEKS
     Route: 058
     Dates: start: 20180928
  6. HUMAN IMMUNOGLOBULIN G\HYALURONIDASE RECOMBINANT HUMAN [Suspect]
     Active Substance: HUMAN IMMUNOGLOBULIN G\HYALURONIDASE RECOMBINANT HUMAN
     Dosage: 15 GRAM, Q2WEEKS
     Route: 058
     Dates: start: 20180928
  7. HUMAN IMMUNOGLOBULIN G\HYALURONIDASE RECOMBINANT HUMAN [Suspect]
     Active Substance: HUMAN IMMUNOGLOBULIN G\HYALURONIDASE RECOMBINANT HUMAN
     Dosage: 15 GRAM, Q2WEEKS
     Route: 058
     Dates: start: 20180928
  8. HUMAN IMMUNOGLOBULIN G\HYALURONIDASE RECOMBINANT HUMAN [Suspect]
     Active Substance: HUMAN IMMUNOGLOBULIN G\HYALURONIDASE RECOMBINANT HUMAN
     Dosage: 10 GRAM, Q2WEEKS
     Route: 058
     Dates: start: 20180928
  9. HUMAN IMMUNOGLOBULIN G\HYALURONIDASE RECOMBINANT HUMAN [Suspect]
     Active Substance: HUMAN IMMUNOGLOBULIN G\HYALURONIDASE RECOMBINANT HUMAN
     Dosage: 5 GRAM, Q2WEEKS
     Route: 058
     Dates: start: 20180928
  10. HUMAN IMMUNOGLOBULIN G\HYALURONIDASE RECOMBINANT HUMAN [Suspect]
     Active Substance: HUMAN IMMUNOGLOBULIN G\HYALURONIDASE RECOMBINANT HUMAN
     Dosage: 15 GRAM, Q2WEEKS
     Route: 058
     Dates: start: 20180928, end: 20210514
  11. HUMAN IMMUNOGLOBULIN G\HYALURONIDASE RECOMBINANT HUMAN [Suspect]
     Active Substance: HUMAN IMMUNOGLOBULIN G\HYALURONIDASE RECOMBINANT HUMAN
     Dosage: 5 GRAM, 1/WEEK
     Route: 058
     Dates: start: 20180928
  12. HUMAN IMMUNOGLOBULIN G\HYALURONIDASE RECOMBINANT HUMAN [Suspect]
     Active Substance: HUMAN IMMUNOGLOBULIN G\HYALURONIDASE RECOMBINANT HUMAN
     Dosage: 20 GRAM, Q2WEEKS
     Route: 058
     Dates: start: 20180928
  13. HUMAN IMMUNOGLOBULIN G\HYALURONIDASE RECOMBINANT HUMAN [Suspect]
     Active Substance: HUMAN IMMUNOGLOBULIN G\HYALURONIDASE RECOMBINANT HUMAN
     Dosage: 20 GRAM, Q2WEEKS
     Route: 058
     Dates: start: 20180928
  14. HUMAN IMMUNOGLOBULIN G\HYALURONIDASE RECOMBINANT HUMAN [Suspect]
     Active Substance: HUMAN IMMUNOGLOBULIN G\HYALURONIDASE RECOMBINANT HUMAN
     Dosage: 20 GRAM, Q2WEEKS
     Route: 058
     Dates: start: 20180928
  15. HUMAN IMMUNOGLOBULIN G\HYALURONIDASE RECOMBINANT HUMAN [Suspect]
     Active Substance: HUMAN IMMUNOGLOBULIN G\HYALURONIDASE RECOMBINANT HUMAN
     Dosage: 20 GRAM, Q2WEEKS
     Route: 058
     Dates: start: 20180928
  16. HUMAN IMMUNOGLOBULIN G\HYALURONIDASE RECOMBINANT HUMAN [Suspect]
     Active Substance: HUMAN IMMUNOGLOBULIN G\HYALURONIDASE RECOMBINANT HUMAN
     Dosage: 20 GRAM, 2/MONTH
     Route: 058
     Dates: start: 20180928
  17. HUMAN IMMUNOGLOBULIN G\HYALURONIDASE RECOMBINANT HUMAN [Suspect]
     Active Substance: HUMAN IMMUNOGLOBULIN G\HYALURONIDASE RECOMBINANT HUMAN
     Dosage: 5 GRAM, Q2WEEKS
     Route: 058
     Dates: start: 20210928
  18. HUMAN IMMUNOGLOBULIN G\HYALURONIDASE RECOMBINANT HUMAN [Suspect]
     Active Substance: HUMAN IMMUNOGLOBULIN G\HYALURONIDASE RECOMBINANT HUMAN
     Dosage: 10 GRAM, Q2WEEKS
     Route: 058
     Dates: start: 20210928
  19. HUMAN IMMUNOGLOBULIN G\HYALURONIDASE RECOMBINANT HUMAN [Suspect]
     Active Substance: HUMAN IMMUNOGLOBULIN G\HYALURONIDASE RECOMBINANT HUMAN
     Dosage: 20 GRAM, Q2WEEKS
     Route: 058
     Dates: start: 20180928
  20. HUMAN IMMUNOGLOBULIN G\HYALURONIDASE RECOMBINANT HUMAN [Suspect]
     Active Substance: HUMAN IMMUNOGLOBULIN G\HYALURONIDASE RECOMBINANT HUMAN
     Dosage: 15 GRAM, Q2WEEKS
     Route: 058
     Dates: start: 20180928
  21. HUMAN IMMUNOGLOBULIN G\HYALURONIDASE RECOMBINANT HUMAN [Suspect]
     Active Substance: HUMAN IMMUNOGLOBULIN G\HYALURONIDASE RECOMBINANT HUMAN
     Dosage: 20 GRAM, Q2WEEKS
     Route: 058
     Dates: start: 20180928
  22. HUMAN IMMUNOGLOBULIN G\HYALURONIDASE RECOMBINANT HUMAN [Suspect]
     Active Substance: HUMAN IMMUNOGLOBULIN G\HYALURONIDASE RECOMBINANT HUMAN
     Dosage: 20 GRAM, Q2WEEKS
     Route: 058
     Dates: start: 20180928
  23. HUMAN IMMUNOGLOBULIN G\HYALURONIDASE RECOMBINANT HUMAN [Suspect]
     Active Substance: HUMAN IMMUNOGLOBULIN G\HYALURONIDASE RECOMBINANT HUMAN
     Dosage: 15 GRAM, Q2WEEKS
     Route: 058
     Dates: start: 20201016
  24. HUMAN IMMUNOGLOBULIN G\HYALURONIDASE RECOMBINANT HUMAN [Suspect]
     Active Substance: HUMAN IMMUNOGLOBULIN G\HYALURONIDASE RECOMBINANT HUMAN
     Dosage: 15 GRAM, Q2WEEKS
     Route: 058
     Dates: start: 20201016, end: 20201016
  25. HUMAN IMMUNOGLOBULIN G\HYALURONIDASE RECOMBINANT HUMAN [Suspect]
     Active Substance: HUMAN IMMUNOGLOBULIN G\HYALURONIDASE RECOMBINANT HUMAN
     Dosage: 40 GRAM
     Route: 065
  26. CORTISONE [Concomitant]
     Active Substance: CORTISONE
     Indication: Product used for unknown indication
     Dosage: 7.5 MILLIGRAM, QD
     Route: 065
  27. CORTISONE [Concomitant]
     Active Substance: CORTISONE
     Dosage: 5 MILLIGRAM, QD
     Route: 065
  28. METFORMIN [Concomitant]
     Active Substance: METFORMIN HYDROCHLORIDE
     Indication: Type 2 diabetes mellitus
     Dosage: UNK
     Route: 065
  29. OCTAGAM IMMUNE GLOBULIN (HUMAN) [Concomitant]
     Active Substance: HUMAN IMMUNOGLOBULIN G
     Indication: Product used for unknown indication
     Dosage: UNK
     Route: 065
     Dates: start: 20220805
  30. DIMETHINDENE [Concomitant]
     Active Substance: DIMETHINDENE

REACTIONS (33)
  - Pancreatitis [Recovered/Resolved]
  - Syncope [Recovered/Resolved]
  - Gastritis [Recovered/Resolved]
  - Abdominal distension [Recovered/Resolved]
  - Burning sensation [Recovered/Resolved]
  - Erythema [Recovered/Resolved]
  - Lipase increased [Recovered/Resolved]
  - Abdominal pain upper [Recovered/Resolved]
  - Conjunctivitis [Recovered/Resolved]
  - Somatic symptom disorder [Recovered/Resolved]
  - Arthropod sting [Recovered/Resolved]
  - Allergy to arthropod sting [Recovered/Resolved]
  - Injection site pruritus [Unknown]
  - Throat tightness [Unknown]
  - Muscle spasms [Recovered/Resolved]
  - Seizure [Recovered/Resolved]
  - Fungal infection [Recovered/Resolved]
  - Type 2 diabetes mellitus [Recovered/Resolved]
  - Injection site erythema [Recovered/Resolved]
  - Injection site swelling [Recovered/Resolved]
  - Cystitis [Recovered/Resolved]
  - Blood immunoglobulin G decreased [Recovered/Resolved]
  - COVID-19 [Recovered/Resolved]
  - Candida infection [Recovered/Resolved]
  - Injection site vesicles [Recovered/Resolved]
  - Feeling hot [Recovered/Resolved]
  - Asthenia [Recovered/Resolved]
  - Fatigue [Recovered/Resolved]
  - Hypersensitivity [Recovered/Resolved]
  - Urinary tract infection [Recovered/Resolved]
  - Ligament injury [Recovered/Resolved]
  - Vomiting [Recovered/Resolved]
  - Cardiovascular disorder [Recovered/Resolved]

NARRATIVE: CASE EVENT DATE: 20210407
